FAERS Safety Report 4455690-4 (Version None)
Quarter: 2004Q3

REPORT INFORMATION
  Report Type: 
  Country: None (occurrence: None)
  Receive Date: 20040922
  Receipt Date: 20040916
  Transmission Date: 20050211
  Serious: Yes (Death)
  Sender: FDA-Public Use
  Company Number: BE-JNJFOC-20040902110

PATIENT
  Age: 77 Year
  Sex: Female

DRUGS (16)
  1. PROPULSID [Suspect]
     Route: 049
  2. PROPULSID [Suspect]
     Route: 049
  3. PROPULSID [Suspect]
     Indication: DIABETIC GASTROPARESIS
     Route: 049
  4. FOSAMAX [Concomitant]
     Indication: OSTEOPOROSIS
     Route: 049
  5. TRAZOLAN [Concomitant]
     Indication: DEPRESSION
     Route: 049
  6. SERTRALINE HCL [Concomitant]
     Indication: DEPRESSION
     Route: 049
  7. STEDVIT D3 [Concomitant]
     Indication: OSTEOPOROSIS
     Route: 049
  8. ACCUPRIL [Concomitant]
     Indication: HYPERTENSION
     Route: 049
  9. PLAVIX [Concomitant]
     Route: 049
  10. DITROPAN [Concomitant]
     Indication: URINARY INCONTINENCE
     Route: 049
  11. ZANIDIP [Concomitant]
     Indication: HYPERTENSION
     Route: 049
  12. FENOFIBRATE [Concomitant]
     Route: 049
  13. FERROGRAD [Concomitant]
     Indication: DRUG USE FOR UNKNOWN INDICATION
     Route: 049
  14. INSULATARD NPH HUMAN [Concomitant]
  15. INSULIN [Concomitant]
     Route: 058
  16. ACTRAPID [Concomitant]

REACTIONS (2)
  - PLEURAL EFFUSION [None]
  - PULMONARY OEDEMA [None]
